FAERS Safety Report 18940764 (Version 1)
Quarter: 2021Q1

REPORT INFORMATION
  Report Type: Spontaneous
  Country: US (occurrence: US)
  Receive Date: 20210225
  Receipt Date: 20210225
  Transmission Date: 20210420
  Serious: No
  Sender: FDA-Public Use
  Company Number: None

PATIENT
  Sex: Female

DRUGS (1)
  1. BUPRENORPHINE 15MCG/HR WEEKLY PATCHES 15 MCG [Suspect]
     Active Substance: BUPRENORPHINE

REACTIONS (4)
  - Rash [None]
  - Blister [None]
  - Erythema [None]
  - Skin swelling [None]
